FAERS Safety Report 7286919-5 (Version None)
Quarter: 2011Q1

REPORT INFORMATION
  Report Type: 
  Country: None (occurrence: None)
  Receive Date: 20110211
  Receipt Date: 20110201
  Transmission Date: 20110831
  Serious: Yes (Other)
  Sender: FDA-Public Use
  Company Number: LU-BIOGENIDEC-2011BI004618

PATIENT
  Sex: Female

DRUGS (1)
  1. TYSABRI [Suspect]
     Indication: MULTIPLE SCLEROSIS
     Route: 042
     Dates: start: 20101003, end: 20101101

REACTIONS (3)
  - RESPIRATORY TRACT OEDEMA [None]
  - PRURITUS [None]
  - DIARRHOEA [None]
